FAERS Safety Report 16282570 (Version 1)
Quarter: 2019Q2

REPORT INFORMATION
  Report Type: Spontaneous
  Country: DE (occurrence: DE)
  Receive Date: 20190507
  Receipt Date: 20190507
  Transmission Date: 20190711
  Serious: Yes (Other)
  Sender: FDA-Public Use
  Company Number: DE-ASTRAZENECA-2019SE68232

PATIENT
  Sex: Female

DRUGS (8)
  1. METFORMIN [Concomitant]
     Active Substance: METFORMIN HYDROCHLORIDE
  2. SIMVASTATIN. [Concomitant]
     Active Substance: SIMVASTATIN
     Dosage: 40
  3. HUMALOG [Concomitant]
     Active Substance: INSULIN LISPRO
  4. FORXIGA [Suspect]
     Active Substance: DAPAGLIFLOZIN
     Indication: MONOGENIC DIABETES
     Dosage: 10.0MG UNKNOWN
     Route: 048
  5. ATACAND PLUS FORTE [Suspect]
     Active Substance: CANDESARTAN CILEXETIL\HYDROCHLOROTHIAZIDE
     Dosage: 32/25 MG
     Route: 048
  6. TRESIBA [Concomitant]
     Active Substance: INSULIN DEGLUDEC
  7. ALLOPURINOL. [Concomitant]
     Active Substance: ALLOPURINOL
     Dosage: 300
  8. AMLODIPIN [Concomitant]
     Active Substance: AMLODIPINE BESYLATE
     Dosage: 5

REACTIONS (4)
  - Product use in unapproved indication [Unknown]
  - Abscess [Unknown]
  - Off label use [Unknown]
  - Furuncle [Unknown]
